FAERS Safety Report 5365098-5 (Version None)
Quarter: 2007Q2

REPORT INFORMATION
  Report Type: 
  Country: None (occurrence: None)
  Receive Date: 20070530
  Receipt Date: 20070328
  Transmission Date: 20071010
  Serious: Yes (Hospitalization)
  Sender: FDA-Public Use
  Company Number: 2007PV0032543

PATIENT
  Age: 57 Year
  Sex: Female
  Weight: 91.6266 kg

DRUGS (9)
  1. BYETTA [Suspect]
     Indication: DIABETES MELLITUS NON-INSULIN-DEPENDENT
     Dosage: 5 MCG BID SC
     Route: 058
     Dates: start: 20070309, end: 20070322
  2. NEXIUM [Concomitant]
  3. LESCOL [Concomitant]
  4. NORMODYNE [Concomitant]
  5. ASPIRIN [Concomitant]
  6. KLONOPIN [Concomitant]
  7. VITAMIN D [Concomitant]
  8. DIOVAN HCT [Concomitant]
  9. DIOVAN [Concomitant]

REACTIONS (2)
  - PANCREATITIS ACUTE [None]
  - WEIGHT DECREASED [None]
